FAERS Safety Report 23819152 (Version 1)
Quarter: 2024Q2

REPORT INFORMATION
  Report Type: Spontaneous
  Country: FR (occurrence: FR)
  Receive Date: 20240506
  Receipt Date: 20240506
  Transmission Date: 20240716
  Serious: Yes (Death, Other)
  Sender: FDA-Public Use
  Company Number: FR-AMGEN-FRASP2024085500

PATIENT

DRUGS (6)
  1. FILGRASTIM [Suspect]
     Active Substance: FILGRASTIM
     Indication: Autologous haematopoietic stem cell transplant
     Dosage: 10- 16 MICROGRAM/KILOGRAM
     Route: 065
  2. BORTEZOMIB [Concomitant]
     Active Substance: BORTEZOMIB
  3. CYCLOPHOSPHAMIDE [Concomitant]
     Active Substance: CYCLOPHOSPHAMIDE
     Dosage: UNK
  4. MELPHALAN [Concomitant]
     Active Substance: MELPHALAN
     Dosage: UNK
  5. CIPROFLOXACIN [Concomitant]
     Active Substance: CIPROFLOXACIN
     Indication: Prophylaxis
  6. ACYCLOVIR [Concomitant]
     Active Substance: ACYCLOVIR
     Indication: Prophylaxis

REACTIONS (13)
  - Septic shock [Fatal]
  - Plasma cell myeloma recurrent [Fatal]
  - Death [Fatal]
  - COVID-19 [Fatal]
  - Colon cancer [Fatal]
  - Lung neoplasm malignant [Fatal]
  - Pneumonia [Unknown]
  - Bacterial infection [Unknown]
  - Fungal infection [Unknown]
  - Viral infection [Unknown]
  - Infection parasitic [Unknown]
  - Acute respiratory distress syndrome [Unknown]
  - Therapy partial responder [Unknown]
